FAERS Safety Report 16598573 (Version 6)
Quarter: 2021Q4

REPORT INFORMATION
  Report Type: Spontaneous
  Country: SK (occurrence: SK)
  Receive Date: 20190719
  Receipt Date: 20211020
  Transmission Date: 20220304
  Serious: Yes (Death, Life-Threatening, Hospitalization, Disabling, Other)
  Sender: FDA-Public Use
  Company Number: SK-NOVPHSZ-PHHY2019SK025780

PATIENT
  Age: 47 Year
  Sex: Male

DRUGS (49)
  1. DOXORUBICIN [Suspect]
     Active Substance: DOXORUBICIN
     Indication: Diffuse large B-cell lymphoma
     Dosage: CYCLIC (3 CYCLES)
     Route: 065
     Dates: start: 20170329, end: 20170402
  2. DOXORUBICIN [Suspect]
     Active Substance: DOXORUBICIN
     Indication: Chemotherapy
     Dosage: CYCLIC (6 CYCLES
     Route: 065
  3. DOXORUBICIN [Suspect]
     Active Substance: DOXORUBICIN
     Dosage: UNK, CYCLE
     Route: 065
     Dates: start: 20170419
  4. BENDAMUSTINE HYDROCHLORIDE [Suspect]
     Active Substance: BENDAMUSTINE HYDROCHLORIDE
     Indication: Diffuse large B-cell lymphoma
     Dosage: UNK UNK, CYCLIC (5 CYCLES)
     Route: 042
     Dates: start: 201602
  5. BENDAMUSTINE HYDROCHLORIDE [Suspect]
     Active Substance: BENDAMUSTINE HYDROCHLORIDE
     Indication: Chemotherapy
     Dosage: 2ND LINE THERAPY, 5 CYCLES
     Dates: start: 201605, end: 201608
  6. BENDAMUSTINE HYDROCHLORIDE [Suspect]
     Active Substance: BENDAMUSTINE HYDROCHLORIDE
     Indication: Follicular lymphoma
     Dosage: UNK
     Route: 065
     Dates: start: 2016
  7. BENDAMUSTINE HYDROCHLORIDE [Suspect]
     Active Substance: BENDAMUSTINE HYDROCHLORIDE
     Dosage: 6 CYCLES
     Route: 065
  8. CYCLOPHOSPHAMIDE [Suspect]
     Active Substance: CYCLOPHOSPHAMIDE
     Indication: Diffuse large B-cell lymphoma
     Dosage: UNK UNK, CYCLIC (3 CYCLES)
     Route: 065
     Dates: start: 20170329, end: 20170402
  9. CYCLOPHOSPHAMIDE [Suspect]
     Active Substance: CYCLOPHOSPHAMIDE
     Indication: Chemotherapy
     Dosage: UNK UNK, CYCLIC (6 CYCLES)
     Route: 065
  10. CYCLOPHOSPHAMIDE [Suspect]
     Active Substance: CYCLOPHOSPHAMIDE
     Indication: Lymphoproliferative disorder
     Dosage: UNK UNK, CYCLIC
     Route: 065
     Dates: start: 20170419
  11. PREDNISONE [Suspect]
     Active Substance: PREDNISONE
     Indication: Diffuse large B-cell lymphoma
     Dosage: UNK, CYCLIC (3 CYCLES),
     Dates: start: 20170329, end: 20170402
  12. PREDNISONE [Suspect]
     Active Substance: PREDNISONE
     Indication: Chemotherapy
     Dosage: UNK, CYCLIC
     Dates: start: 20170419
  13. PREDNISONE [Suspect]
     Active Substance: PREDNISONE
     Dosage: UNK, CYCLIC (6 CYCLES)
  14. RITUXIMAB [Suspect]
     Active Substance: RITUXIMAB
     Indication: Lymphoma
     Dosage: 2ND LINE THERAPY, 5 CYCLES
     Route: 065
     Dates: start: 201605, end: 201608
  15. RITUXIMAB [Suspect]
     Active Substance: RITUXIMAB
     Indication: Diffuse large B-cell lymphoma
     Dosage: CYCLIC (6 CYCLES)
     Route: 065
     Dates: start: 2016
  16. RITUXIMAB [Suspect]
     Active Substance: RITUXIMAB
     Indication: Follicular lymphoma
  17. RITUXIMAB [Suspect]
     Active Substance: RITUXIMAB
     Indication: Chemotherapy
  18. VINCRISTINE [Suspect]
     Active Substance: VINCRISTINE
     Indication: Diffuse large B-cell lymphoma
     Dosage: UNK UNK, CYCLIC (6 CYCLES), UNK UNK, CYCLIC (3 CYCLES)
     Route: 065
     Dates: start: 20170329, end: 20170402
  19. VINCRISTINE [Suspect]
     Active Substance: VINCRISTINE
     Indication: Chemotherapy
     Dosage: UNK, CYCLE
     Route: 065
     Dates: start: 20170419
  20. VINCRISTINE [Suspect]
     Active Substance: VINCRISTINE
     Dosage: 6 CYCLES
     Route: 065
  21. GEMCITABINE [Concomitant]
     Active Substance: GEMCITABINE
     Indication: Lymphoma
     Dosage: BSA 1M2
     Route: 065
     Dates: start: 20170425
  22. GEMCITABINE [Concomitant]
     Active Substance: GEMCITABINE
     Indication: Chemotherapy
  23. LINEZOLID [Concomitant]
     Active Substance: LINEZOLID
     Indication: Cellulitis
     Dosage: UNK
  24. LINEZOLID [Concomitant]
     Active Substance: LINEZOLID
     Indication: Antibiotic therapy
  25. VANCOMYCIN [Concomitant]
     Active Substance: VANCOMYCIN
     Indication: Antibiotic therapy
     Dosage: UNK
  26. VANCOMYCIN [Concomitant]
     Active Substance: VANCOMYCIN
     Indication: Infection
  27. AMIKACIN [Concomitant]
     Active Substance: AMIKACIN
     Indication: Necrotising fasciitis
     Dosage: UNK
     Route: 065
     Dates: start: 20160814
  28. AMIKACIN [Concomitant]
     Active Substance: AMIKACIN
     Indication: Infection
     Dosage: UNK
     Route: 065
     Dates: start: 20161010
  29. UNSPECIFIED INGREDIENT [Concomitant]
     Active Substance: UNSPECIFIED INGREDIENT
     Indication: Necrotising fasciitis
     Dosage: UNK
     Route: 065
     Dates: start: 20160814
  30. DEXAMETHASONE [Concomitant]
     Active Substance: DEXAMETHASONE
     Indication: Lymphoma
     Dosage: BSA 1M2
     Route: 065
     Dates: start: 20170424
  31. DEXAMETHASONE [Concomitant]
     Active Substance: DEXAMETHASONE
     Indication: Chemotherapy
  32. FLUCONAZOLE [Concomitant]
     Active Substance: FLUCONAZOLE
     Indication: Necrotising fasciitis
     Dosage: UNK
     Route: 065
     Dates: start: 20170419
  33. FLUCONAZOLE [Concomitant]
     Active Substance: FLUCONAZOLE
     Indication: Bacterial infection
     Dosage: UNK
     Route: 065
     Dates: start: 20160814
  34. FLUCONAZOLE [Concomitant]
     Active Substance: FLUCONAZOLE
     Indication: Infection
  35. MEROPENEM [Concomitant]
     Active Substance: MEROPENEM
     Indication: Necrotising fasciitis
     Dosage: UNK
     Route: 065
     Dates: start: 20160814
  36. MEROPENEM [Concomitant]
     Active Substance: MEROPENEM
     Indication: Infection
  37. FILGRASTIM [Concomitant]
     Active Substance: FILGRASTIM
     Indication: Necrotising fasciitis
     Dosage: UNK
     Route: 065
     Dates: start: 20160814
  38. METRONIDAZOLE [Concomitant]
     Active Substance: METRONIDAZOLE
     Indication: Necrotising fasciitis
     Dosage: UNK
     Route: 065
     Dates: start: 20160814
  39. METRONIDAZOLE [Concomitant]
     Active Substance: METRONIDAZOLE
     Indication: Infection
  40. CLINDAMYCIN [Concomitant]
     Active Substance: CLINDAMYCIN
     Indication: Infection
     Dosage: UNK
  41. BISEPTOL [Concomitant]
     Active Substance: SULFAMETHOXAZOLE\TRIMETHOPRIM
     Indication: Bacterial infection
     Dosage: UNK
     Dates: start: 20170419
  42. BISEPTOL [Concomitant]
     Active Substance: SULFAMETHOXAZOLE\TRIMETHOPRIM
     Indication: Infection
  43. COLISTIMETHATE SODIUM [Concomitant]
     Active Substance: COLISTIMETHATE SODIUM
     Indication: Bacterial infection
     Dosage: UNK
     Dates: start: 20170419
  44. COLISTIMETHATE SODIUM [Concomitant]
     Active Substance: COLISTIMETHATE SODIUM
     Indication: Infection
  45. NOREPINEPHRINE [Concomitant]
     Active Substance: NOREPINEPHRINE
     Dosage: UNK
  46. IMIPENEM [Concomitant]
     Active Substance: IMIPENEM
     Indication: Antibiotic therapy
     Dosage: UNK
     Dates: start: 20161010
  47. CILASTATIN SODIUM\IMIPENEM [Concomitant]
     Active Substance: CILASTATIN SODIUM\IMIPENEM
     Indication: Infection
     Dosage: SLIGHTLY REDUCED DOSE
  48. CEFTAZIDIME [Concomitant]
     Active Substance: CEFTAZIDIME
     Indication: Antibiotic therapy
     Dosage: UNK
     Dates: start: 20161010
  49. COLISTIN [Concomitant]
     Active Substance: COLISTIN
     Indication: Infection
     Dosage: UNK
     Dates: start: 20170419

REACTIONS (21)
  - Clostridial infection [Fatal]
  - Muscle necrosis [Unknown]
  - Debridement [Unknown]
  - Leg amputation [Unknown]
  - Enterococcal infection [Unknown]
  - Pseudomonas infection [Unknown]
  - Klebsiella infection [Unknown]
  - Clostridium test positive [Unknown]
  - Anaemia [Unknown]
  - Inflammation [Unknown]
  - Septic shock [Unknown]
  - Leukopenia [Unknown]
  - Febrile neutropenia [Unknown]
  - Neutropenia [Recovering/Resolving]
  - Sputum purulent [Unknown]
  - Product use in unapproved indication [Unknown]
  - Organ failure [Unknown]
  - Off label use [Unknown]
  - Sepsis [Recovered/Resolved]
  - Metabolic disorder [Unknown]
  - Neutrophil count decreased [Recovering/Resolving]

NARRATIVE: CASE EVENT DATE: 20160501
